FAERS Safety Report 6188621-X (Version None)
Quarter: 2009Q2

REPORT INFORMATION
  Report Type: 
  Country: None (occurrence: None)
  Receive Date: 20090513
  Receipt Date: 20090504
  Transmission Date: 20091009
  Serious: Yes (Other)
  Sender: FDA-Public Use
  Company Number: B0573044A

PATIENT
  Age: 45 Year
  Sex: Male

DRUGS (4)
  1. AVAMYS [Suspect]
     Indication: RESPIRATION ABNORMAL
     Route: 045
     Dates: start: 20090401, end: 20090401
  2. CITALOPRAM HYDROBROMIDE [Concomitant]
  3. TRAMADOL HCL [Concomitant]
  4. TRITTICO [Concomitant]

REACTIONS (1)
  - BLEPHAROSPASM [None]
